FAERS Safety Report 9462923 (Version 1)
Quarter: 2013Q3

REPORT INFORMATION
  Report Type: Spontaneous
  Country: FR (occurrence: None)
  Receive Date: 20130814
  Receipt Date: 20130814
  Transmission Date: 20140515
  Serious: Yes (Hospitalization)
  Sender: FDA-Public Use
  Company Number: 7227772

PATIENT
  Age: 73 Year
  Sex: Male

DRUGS (15)
  1. LEVOTHYROX [Suspect]
     Indication: HYPOTHYROIDISM
     Dosage: 87.5 MCG (87.5 MCG, 1 IN 1 D) ORAL
     Route: 048
  2. PREVISCAN [Suspect]
     Indication: PROPHYLAXIS
     Dosage: 0.75 DF (0.75 DF, 1 IN 1 D) ORAL
     Route: 048
     Dates: end: 20130708
  3. CARDENSIEL [Suspect]
     Indication: HYPERTENSION
     Dosage: 5 MG (5 MG, 1 IN 1 D) ORAL
     Route: 048
  4. RIFADINE [Suspect]
     Route: 048
     Dates: start: 20130628, end: 20130708
  5. GEMTAMICINE [Suspect]
     Indication: INFECTION
     Dosage: 240 MG (240 MG, 1 IN 1 D)
     Dates: start: 20130704, end: 20130708
  6. GENTAMICINE [Suspect]
     Indication: INFECTION
     Dosage: 240 MG (240 MG, 1 IN 1 D)
     Dates: start: 20130704, end: 20130708
  7. LEVOFLOXACINE [Suspect]
     Indication: INFECTION
     Route: 048
     Dates: start: 20130704
  8. CORDARONE [Suspect]
     Indication: ATRIAL FIBRILLATION
     Dosage: 142.8571 MG (200 MG, 5 IN 1 WK)
  9. ZYLORIC [Suspect]
     Indication: HYPERURICAEMIA
     Route: 048
  10. LASILLIX [Suspect]
     Indication: HYPERTENSION
     Route: 048
  11. SERETIDE DISKUS [Suspect]
     Indication: CHRONIC OBSTRUCTIVE PULMONARY DISEASE
     Dosage: 2 DF (1 DF, 2 IN 1 D)
     Route: 055
  12. EUPANTOL [Suspect]
     Indication: ULCER
     Dosage: 1 DF (1 DF, 1 IN 1 D)
     Route: 048
  13. BRICANYL [Suspect]
     Indication: PRODUCT USED FOR UNKNOWN INDICATION
     Dates: start: 20120626
  14. ATROVENT [Suspect]
     Indication: PRODUCT USED FOR UNKNOWN INDICATION
     Dates: start: 20130326
  15. OFLOXACIN (OFLOXACIN) (OFLOXACIN) [Concomitant]

REACTIONS (3)
  - Hepatitis [None]
  - Chronic obstructive pulmonary disease [None]
  - Bacteraemia [None]
